FAERS Safety Report 13328972 (Version 1)
Quarter: 2017Q1

REPORT INFORMATION
  Report Type: Spontaneous
  Country: US (occurrence: US)
  Receive Date: 20170310
  Receipt Date: 20170310
  Transmission Date: 20170428
  Serious: No
  Sender: FDA-Public Use
  Company Number: None

PATIENT
  Age: 61 Year
  Sex: Female

DRUGS (1)
  1. ZARXIO [Suspect]
     Active Substance: FILGRASTIM-SNDZ
     Indication: PRODUCT USED FOR UNKNOWN INDICATION
     Dates: start: 20170306, end: 20170308

REACTIONS (5)
  - Epistaxis [None]
  - Tinnitus [None]
  - Burning sensation [None]
  - Contusion [None]
  - Therapy cessation [None]

NARRATIVE: CASE EVENT DATE: 20170306
